FAERS Safety Report 4519402-8 (Version None)
Quarter: 2004Q4

REPORT INFORMATION
  Report Type: 
  Country: None (occurrence: None)
  Receive Date: 20041206
  Receipt Date: 20041124
  Transmission Date: 20050328
  Serious: Yes (Hospitalization, Other)
  Sender: FDA-Public Use
  Company Number: 2004098538

PATIENT
  Age: 87 Year
  Sex: Female
  Weight: 40.8237 kg

DRUGS (7)
  1. DRAMAMINE [Suspect]
     Indication: NERVOUS SYSTEM DISORDER
     Dosage: 1-2 TABLETS A WEEK, PRN, ORAL
     Route: 048
     Dates: start: 19980101
  2. DIMENHYDRINATE (DIMENHYDRINATE) [Suspect]
     Indication: NERVOUS SYSTEM DISORDER
     Dosage: INTRAVENOUS
     Route: 042
     Dates: start: 19980101, end: 20020101
  3. MULTIVITAMINS (ASCORBIC ACID, ERGOCALCIFEROL, FOLIC ACID, NICOTINAMIDE [Concomitant]
  4. ASCORBIC ACID [Concomitant]
  5. CALCIUM CARBONATE (CALCIUM CARBONATE) [Concomitant]
  6. DIHYDROXYALUMINUM SODIUM CARBONATE (DIHYDROXYALUMINUM SODIUM CARBONATE [Concomitant]
  7. ACETAMINOPHEN [Concomitant]

REACTIONS (8)
  - DRUG EFFECT DECREASED [None]
  - MYOCARDIAL INFARCTION [None]
  - NASOPHARYNGITIS [None]
  - NAUSEA [None]
  - ROAD TRAFFIC ACCIDENT [None]
  - SOMNOLENCE [None]
  - UNEVALUABLE EVENT [None]
  - VOMITING [None]
